FAERS Safety Report 23230636 (Version 1)
Quarter: 2023Q4

REPORT INFORMATION
  Report Type: Spontaneous
  Country: US (occurrence: None)
  Receive Date: 20231123
  Receipt Date: 20231123
  Transmission Date: 20240110
  Serious: No
  Sender: FDA-Public Use
  Company Number: None

PATIENT
  Age: 18 Year
  Sex: Male
  Weight: 99 kg

DRUGS (7)
  1. FLUOXETINE [Suspect]
     Active Substance: FLUOXETINE HYDROCHLORIDE
     Indication: Obsessive-compulsive disorder
     Dosage: OTHER QUANTITY : 2 CAPSULE(S);?FREQUENCY : DAILY;?
     Route: 048
  2. FLUOXETINE [Concomitant]
     Active Substance: FLUOXETINE HYDROCHLORIDE
  3. OMEPRAZOLE [Concomitant]
     Active Substance: OMEPRAZOLE
  4. mimyx [Concomitant]
  5. TRELEGY ELLIPTA [Concomitant]
     Active Substance: FLUTICASONE FUROATE\UMECLIDINIUM BROMIDE\VILANTEROL TRIFENATATE
  6. ZYRTEC [Concomitant]
     Active Substance: CETIRIZINE HYDROCHLORIDE
  7. CETAPHIL DAILY FACIAL MOISTURIZER WITH SUNCREEN SPF 50 [Concomitant]
     Active Substance: OCTINOXATE\OCTISALATE\OCTOCRYLENE\OXYBENZONE\TITANIUM DIOXIDE

REACTIONS (1)
  - Gastrooesophageal reflux disease [None]

NARRATIVE: CASE EVENT DATE: 20231120
